FAERS Safety Report 18204341 (Version 2)
Quarter: 2020Q3

REPORT INFORMATION
  Report Type: Spontaneous
  Country: DE (occurrence: DE)
  Receive Date: 20200827
  Receipt Date: 20200916
  Transmission Date: 20201103
  Serious: Yes (Hospitalization, Other)
  Sender: FDA-Public Use
  Company Number: DE-AMGEN-DEUSP2020134318

PATIENT
  Age: 6 Year
  Sex: Male

DRUGS (3)
  1. PROLIA [Suspect]
     Active Substance: DENOSUMAB
     Indication: ANEURYSMAL BONE CYST
     Dosage: 60 MILLIGRAM, Q4WK WITH TWO ADDITIONAL DOSES ON DAYS 8 AND 15
     Route: 065
     Dates: start: 2011, end: 201209
  2. PROLIA [Suspect]
     Active Substance: DENOSUMAB
     Dosage: 30 MILLIGRAM, Q3MO
     Route: 065
     Dates: start: 201212, end: 201309
  3. PROLIA [Suspect]
     Active Substance: DENOSUMAB
     Dosage: UNK
     Route: 065

REACTIONS (4)
  - Rebound effect [Recovered/Resolved]
  - Metabolic alkalosis [Unknown]
  - Off label use [Unknown]
  - Hypercalcaemia [Recovered/Resolved]

NARRATIVE: CASE EVENT DATE: 2011
